FAERS Safety Report 14090957 (Version 1)
Quarter: 2017Q4

REPORT INFORMATION
  Report Type: Spontaneous
  Country: US (occurrence: US)
  Receive Date: 20171016
  Receipt Date: 20171016
  Transmission Date: 20180321
  Serious: No
  Sender: FDA-Public Use
  Company Number: US-SHIRE-US201720999

PATIENT
  Sex: Male
  Weight: 63.49 kg

DRUGS (2)
  1. XIIDRA [Suspect]
     Active Substance: LIFITEGRAST
     Indication: DRY EYE
  2. XIIDRA [Suspect]
     Active Substance: LIFITEGRAST
     Indication: SJOGREN^S SYNDROME
     Dosage: 1 GTT, 2X/DAY:BID
     Route: 047

REACTIONS (3)
  - Instillation site reaction [Unknown]
  - Foreign body in eye [Unknown]
  - Superficial injury of eye [Unknown]
